FAERS Safety Report 17433705 (Version 7)
Quarter: 2025Q1

REPORT INFORMATION
  Report Type: Report from Study
  Country: US (occurrence: US)
  Receive Date: 20200219
  Receipt Date: 20250226
  Transmission Date: 20250409
  Serious: Yes (Hospitalization, Disabling, Other)
  Sender: TAKEDA
  Company Number: US-SHIRE-US202006286

PATIENT
  Age: 49 Year
  Sex: Male

DRUGS (7)
  1. HUMAN C1-ESTERASE INHIBITOR [Suspect]
     Active Substance: HUMAN C1-ESTERASE INHIBITOR
     Indication: Hereditary angioedema
  2. HUMAN C1-ESTERASE INHIBITOR [Suspect]
     Active Substance: HUMAN C1-ESTERASE INHIBITOR
     Indication: Prophylaxis
  3. HUMAN C1-ESTERASE INHIBITOR [Suspect]
     Active Substance: HUMAN C1-ESTERASE INHIBITOR
  4. KALBITOR [Suspect]
     Active Substance: ECALLANTIDE
     Indication: Hereditary angioedema
  5. KALBITOR [Suspect]
     Active Substance: ECALLANTIDE
  6. KALBITOR [Suspect]
     Active Substance: ECALLANTIDE
  7. TAKHZYRO [Suspect]
     Active Substance: LANADELUMAB-FLYO
     Indication: Prophylaxis
     Dosage: 300 MILLIGRAM, Q2WEEKS

REACTIONS (14)
  - Pneumonia [Unknown]
  - Staphylococcal infection [Recovered/Resolved]
  - Stress [Recovered/Resolved]
  - COVID-19 [Recovered/Resolved]
  - Nerve compression [Unknown]
  - Hereditary angioedema [Recovering/Resolving]
  - Influenza [Recovered/Resolved]
  - Epicondylitis [Not Recovered/Not Resolved]
  - Prescribed overdose [Unknown]
  - Blood iron decreased [Unknown]
  - Device occlusion [Unknown]
  - Neuralgia [Unknown]
  - Hypoaesthesia [Unknown]
  - Carpal tunnel syndrome [Unknown]

NARRATIVE: CASE EVENT DATE: 20231001
